FAERS Safety Report 14952020 (Version 4)
Quarter: 2019Q3

REPORT INFORMATION
  Report Type: Spontaneous
  Country: US (occurrence: US)
  Receive Date: 20180530
  Receipt Date: 20190729
  Transmission Date: 20191004
  Serious: No
  Sender: FDA-Public Use
  Company Number: US-SA-2018SA108154

PATIENT
  Age: 59 Year
  Sex: Male
  Weight: 69.39 kg

DRUGS (1)
  1. DUPIXENT [Suspect]
     Active Substance: DUPILUMAB
     Indication: DERMATITIS ATOPIC
     Dosage: 300 MG,QOW
     Route: 058
     Dates: start: 20180321

REACTIONS (8)
  - Burning sensation [Not Recovered/Not Resolved]
  - Eye swelling [Not Recovered/Not Resolved]
  - Dermatitis atopic [Not Recovered/Not Resolved]
  - Pruritus [Unknown]
  - Rash [Not Recovered/Not Resolved]
  - Urticaria [Not Recovered/Not Resolved]
  - Ocular hyperaemia [Not Recovered/Not Resolved]
  - Therapeutic response decreased [Not Recovered/Not Resolved]
